FAERS Safety Report 4715609-5 (Version None)
Quarter: 2005Q3

REPORT INFORMATION
  Report Type: 
  Country: None (occurrence: None)
  Receive Date: 20050714
  Receipt Date: 20050701
  Transmission Date: 20060218
  Serious: Yes (Death)
  Sender: FDA-Public Use
  Company Number: 05-05-0831

PATIENT
  Sex: Male

DRUGS (14)
  1. FUROSEMIDE [Suspect]
     Dosage: 80MG AM ; ORAL
     Route: 048
  2. SPIRIVA [Suspect]
     Dosage: OTHER
     Route: 050
  3. ALLOPURINOL [Suspect]
     Dosage: 200MG; ORAL
     Route: 048
  4. DIGOXIN [Suspect]
     Dosage: 250MG, QD; ORAL
     Route: 048
  5. PANTOPRAZOLE UNKNOWN [Suspect]
     Dosage: 20MG QD; ORAL
     Route: 048
  6. COVERSYL UNKNOWN [Suspect]
     Dosage: 4MG, QD
  7. VENTOLIN [Suspect]
  8. TIOTROPIUM BROMIDE UNKNOWN [Suspect]
     Dosage: UNKNOWN; INHALATION
     Route: 055
  9. BECLOMETHASON DIPROPIONATE [Concomitant]
  10. SIMVASTATIN 40MG NIGHTLY ORAL [Concomitant]
  11. WARFARIN UNKNOWN ORAL [Concomitant]
  12. ACETAMINOPHEN [Concomitant]
  13. ALBUTEROL SULFATE HFA [Concomitant]
  14. ALLOPURINOL [Concomitant]

REACTIONS (1)
  - AORTIC DISSECTION [None]
